FAERS Safety Report 9797142 (Version 1)
Quarter: 2013Q4

REPORT INFORMATION
  Report Type: Spontaneous
  Country: FR (occurrence: None)
  Receive Date: 20131230
  Receipt Date: 20131230
  Transmission Date: 20140711
  Serious: Yes (Death)
  Sender: FDA-Public Use
  Company Number: 2013000346

PATIENT
  Age: 70 Year
  Sex: Male

DRUGS (9)
  1. ACEON [Suspect]
     Indication: PRODUCT USED FOR UNKNOWN INDICATION
     Route: 048
     Dates: start: 20131101, end: 20131117
  2. GADOLINIUM [Suspect]
     Indication: NUCLEAR MAGNETIC RESONANCE IMAGING
     Dosage: SINGLE
     Route: 042
     Dates: start: 20131106, end: 20131106
  3. LASILIX (FUROSEMIDE) [Suspect]
     Indication: PRODUCT USED FOR UNKNOWN INDICATION
     Route: 048
     Dates: start: 20131101, end: 20131117
  4. KARDEGIC [Concomitant]
  5. PREVISCAN [Concomitant]
  6. CORDARONE [Concomitant]
  7. DISCOTRINE [Concomitant]
  8. PARIET [Concomitant]
  9. DUPHALAC [Concomitant]

REACTIONS (8)
  - Renal failure acute [None]
  - Septic shock [None]
  - Citrobacter test positive [None]
  - Staphylococcus test positive [None]
  - Cardiogenic shock [None]
  - Ventricular fibrillation [None]
  - Acidosis [None]
  - Hyperkalaemia [None]
